FAERS Safety Report 8766201 (Version 2)
Quarter: 2015Q2

REPORT INFORMATION
  Report Type: Report from Study
  Country: US (occurrence: US)
  Receive Date: 20120904
  Receipt Date: 20150623
  Transmission Date: 20150821
  Serious: Yes (Death)
  Sender: FDA-Public Use
  Company Number: US-ROCHE-1109494

PATIENT
  Sex: Male

DRUGS (20)
  1. ZAROXOLYN [Concomitant]
     Active Substance: METOLAZONE
     Route: 065
  2. DIABETA [Concomitant]
     Active Substance: GLYBURIDE
     Route: 065
  3. INSULIN [Concomitant]
     Active Substance: INSULIN NOS
     Route: 042
  4. POTASSIUM CHLORIDE. [Concomitant]
     Active Substance: POTASSIUM CHLORIDE
     Route: 065
  5. NORVASC [Concomitant]
     Active Substance: AMLODIPINE BESYLATE
     Route: 065
  6. VASOTEC [Concomitant]
     Active Substance: ENALAPRIL MALEATE
     Route: 065
  7. SPIRONOLACTONE. [Concomitant]
     Active Substance: SPIRONOLACTONE
     Route: 065
  8. DIFLUCAN [Concomitant]
     Active Substance: FLUCONAZOLE
  9. HUMULIN R [Concomitant]
     Active Substance: INSULIN HUMAN
     Dosage: 30/20 SLIDING SCALE
     Route: 058
  10. POTASSIUM CHLORIDE. [Concomitant]
     Active Substance: POTASSIUM CHLORIDE
     Route: 065
  11. HUMALOG [Concomitant]
     Active Substance: INSULIN LISPRO
     Dosage: 70/30, 30 UNITS AM AND 22 UNITS PM
     Route: 065
  12. LUNESTA [Concomitant]
     Active Substance: ESZOPICLONE
  13. FLOMAX (UNITED STATES) [Concomitant]
     Dosage: AT BED TIME AS PER NEEDED
     Route: 065
  14. TARCEVA [Suspect]
     Active Substance: ERLOTINIB HYDROCHLORIDE
     Indication: MALIGNANT URINARY TRACT NEOPLASM
     Route: 048
  15. AVASTIN [Suspect]
     Active Substance: BEVACIZUMAB
     Indication: MALIGNANT RESPIRATORY TRACT NEOPLASM
     Route: 042
     Dates: start: 20051027
  16. GLYBURIDE. [Concomitant]
     Active Substance: GLYBURIDE
     Route: 065
  17. DARVOCET [Concomitant]
     Active Substance: ACETAMINOPHEN\PROPOXYPHENE HYDROCHLORIDE
  18. ENALAPRIL [Concomitant]
     Active Substance: ENALAPRIL
  19. ZAROXOLYN [Concomitant]
     Active Substance: METOLAZONE
     Route: 065
  20. LASIX [Concomitant]
     Active Substance: FUROSEMIDE
     Route: 065

REACTIONS (11)
  - Stomatitis [Unknown]
  - Impaired healing [Unknown]
  - Oral candidiasis [Unknown]
  - Weight decreased [Unknown]
  - Skin ulcer [Unknown]
  - Jugular vein distension [Recovered/Resolved]
  - Off label use [Unknown]
  - Urine output decreased [Unknown]
  - Diarrhoea [Recovering/Resolving]
  - Death [Fatal]
  - Musculoskeletal stiffness [Unknown]
